FAERS Safety Report 25543791 (Version 1)
Quarter: 2025Q3

REPORT INFORMATION
  Report Type: Other
  Country: US (occurrence: US)
  Receive Date: 20250711
  Receipt Date: 20250711
  Transmission Date: 20251020
  Serious: Yes (Death, Hospitalization)
  Sender: ANI
  Company Number: US-ANIPHARMA-023427

PATIENT
  Age: 45 Year
  Sex: Female

DRUGS (10)
  1. VANCOMYCIN [Suspect]
     Active Substance: VANCOMYCIN
     Indication: Sepsis
  2. PIPERACILLIN SODIUM\TAZOBACTAM SODIUM [Concomitant]
     Active Substance: PIPERACILLIN SODIUM\TAZOBACTAM SODIUM
     Indication: Sepsis
  3. CLINDAMYCIN [Concomitant]
     Active Substance: CLINDAMYCIN
     Indication: Sepsis
  4. Immune globulin [Concomitant]
     Indication: Immune thrombocytopenia
  5. EPINEPHRINE [Concomitant]
     Active Substance: EPINEPHRINE
     Indication: Shock
  6. NOREPINEPHRINE [Concomitant]
     Active Substance: NOREPINEPHRINE
     Indication: Shock
  7. VASOPRESSIN [Concomitant]
     Active Substance: VASOPRESSIN
     Indication: Shock
  8. SODIUM BICARBONATE [Concomitant]
     Active Substance: SODIUM BICARBONATE
     Indication: Metabolic acidosis
  9. VANCOMYCIN [Suspect]
     Active Substance: VANCOMYCIN
     Indication: Vaginal infection
  10. PIPERACILLIN SODIUM\TAZOBACTAM SODIUM [Concomitant]
     Active Substance: PIPERACILLIN SODIUM\TAZOBACTAM SODIUM
     Indication: Vaginal infection

REACTIONS (1)
  - Drug ineffective [Fatal]
